FAERS Safety Report 13598172 (Version 1)
Quarter: 2017Q2

REPORT INFORMATION
  Report Type: Report from Study
  Country: CO (occurrence: CO)
  Receive Date: 20170531
  Receipt Date: 20170531
  Transmission Date: 20170830
  Serious: Yes (Other)
  Sender: FDA-Public Use
  Company Number: CO-AMGEN-COLSL2017081850

PATIENT
  Age: 68 Year
  Sex: Female
  Weight: 54.3 kg

DRUGS (1)
  1. PROLIA [Suspect]
     Active Substance: DENOSUMAB
     Indication: OSTEOPOROSIS POSTMENOPAUSAL
     Dosage: 60 MG, Q6MO
     Route: 058
     Dates: start: 20150217

REACTIONS (2)
  - Aortic valve incompetence [Recovering/Resolving]
  - Meningioma [Recovering/Resolving]

NARRATIVE: CASE EVENT DATE: 20170225
